FAERS Safety Report 17060522 (Version 2)
Quarter: 2020Q1

REPORT INFORMATION
  Report Type: Spontaneous
  Country: US (occurrence: US)
  Receive Date: 20191121
  Receipt Date: 20200116
  Transmission Date: 20200409
  Serious: Yes (Other)
  Sender: FDA-Public Use
  Company Number: US-BAYER-2019-204273

PATIENT
  Sex: Male

DRUGS (1)
  1. KOGENATE FS [Suspect]
     Active Substance: ANTIHEMOPHILIC FACTOR, HUMAN RECOMBINANT
     Indication: ACUTE LYMPHOCYTIC LEUKAEMIA
     Dosage: 2300 U, TIW
     Route: 042
     Dates: start: 20180626

REACTIONS (3)
  - Haemorrhage [None]
  - Off label use [None]
  - Product use in unapproved indication [None]
